FAERS Safety Report 5897775-1 (Version None)
Quarter: 2008Q3

REPORT INFORMATION
  Report Type: 
  Country: None (occurrence: None)
  Receive Date: 20080925
  Receipt Date: 20080918
  Transmission Date: 20090109
  Serious: Yes (Hospitalization, Other)
  Sender: FDA-Public Use
  Company Number: PHHY2008BR22047

PATIENT
  Age: 27 Year
  Sex: Female
  Weight: 57 kg

DRUGS (3)
  1. FORASEQ [Suspect]
     Indication: ASTHMA
     Dosage: 1 INHALATION EVERY 12 HOURS
     Dates: start: 20070901, end: 20080916
  2. FORASEQ [Suspect]
     Dosage: 1 INHALATION EVERY 12 HOURS
     Dates: start: 20080918
  3. CORTICOSTEROIDS [Suspect]

REACTIONS (11)
  - ABNORMAL BEHAVIOUR [None]
  - AGITATION [None]
  - ANXIETY [None]
  - ASTHMA [None]
  - CRYING [None]
  - HALLUCINATION [None]
  - IMPATIENCE [None]
  - INSOMNIA [None]
  - IRRITABILITY [None]
  - NERVOUSNESS [None]
  - TREMOR [None]
